FAERS Safety Report 15863381 (Version 2)
Quarter: 2019Q1

REPORT INFORMATION
  Report Type: Spontaneous
  Country: US (occurrence: US)
  Receive Date: 20190124
  Receipt Date: 20190225
  Transmission Date: 20190417
  Serious: Yes (Hospitalization)
  Sender: FDA-Public Use
  Company Number: US-PTC THERAPEUTICS, INC.-US-2019PTC000107

PATIENT

DRUGS (3)
  1. EMFLAZA [Suspect]
     Active Substance: DEFLAZACORT
     Dosage: UNK, UNK, UNK
     Route: 065
     Dates: start: 20170821
  2. EMFLAZA [Suspect]
     Active Substance: DEFLAZACORT
     Dosage: 22.5 MG, QD
     Route: 050
     Dates: start: 20170821
  3. EMFLAZA [Suspect]
     Active Substance: DEFLAZACORT
     Indication: DUCHENNE MUSCULAR DYSTROPHY
     Dosage: 30 MG, UNK
     Route: 048
     Dates: start: 20170721

REACTIONS (5)
  - Emotional disorder [Unknown]
  - Weight decreased [Unknown]
  - Gastrointestinal tube insertion [Unknown]
  - Pneumonia aspiration [Unknown]
  - Abnormal behaviour [Unknown]

NARRATIVE: CASE EVENT DATE: 20190110
